FAERS Safety Report 19230708 (Version 1)
Quarter: 2021Q2

REPORT INFORMATION
  Report Type: Spontaneous
  Country: US (occurrence: US)
  Receive Date: 20210507
  Receipt Date: 20210507
  Transmission Date: 20210717
  Serious: Yes (Life-Threatening, Hospitalization)
  Sender: FDA-Public Use
  Company Number: None

PATIENT
  Age: 23 Year
  Sex: Male
  Weight: 73 kg

DRUGS (3)
  1. CLOZAPINE. [Suspect]
     Active Substance: CLOZAPINE
     Route: 048
     Dates: start: 20210308, end: 20210401
  2. CLOMIPRAMINE 100MG BID [Concomitant]
  3. DIVALPROEX SODIUM DR 1000MG DAILY [Concomitant]

REACTIONS (3)
  - Left ventricular dysfunction [None]
  - Myocarditis [None]
  - Pneumonia aspiration [None]

NARRATIVE: CASE EVENT DATE: 20210401
